FAERS Safety Report 9669377 (Version 1)
Quarter: 2013Q4

REPORT INFORMATION
  Report Type: Spontaneous
  Country: FR (occurrence: None)
  Receive Date: 20131101
  Receipt Date: 20131101
  Transmission Date: 20140711
  Serious: Yes (Hospitalization)
  Sender: FDA-Public Use
  Company Number: 1922703

PATIENT
  Age: 75 Year
  Sex: Female

DRUGS (4)
  1. CARBOPLATIN [Suspect]
     Route: 041
     Dates: start: 20100615, end: 20100615
  2. ENDOXAN [Suspect]
     Indication: OVARIAN CANCER
     Route: 041
     Dates: start: 20100615, end: 20100615
  3. METHYLPREDNISOLONE [Suspect]
     Indication: PREMEDICATION
     Dates: start: 20100615, end: 20100615
  4. ZOPHREN [Suspect]
     Indication: PRODUCT USED FOR UNKNOWN INDICATION
     Route: 042
     Dates: start: 20100615, end: 20100615

REACTIONS (4)
  - Abdominal pain [None]
  - Nausea [None]
  - Salivary hypersecretion [None]
  - Blood pressure increased [None]
